FAERS Safety Report 4603323-6 (Version None)
Quarter: 2005Q2

REPORT INFORMATION
  Report Type: 
  Country: None (occurrence: None)
  Receive Date: 20050223
  Receipt Date: 20041129
  Transmission Date: 20051028
  Serious: No
  Sender: FDA-Public Use
  Company Number: 210267

PATIENT
  Age: 68 Year
  Sex: Female

DRUGS (4)
  1. RAPTIVA [Suspect]
     Indication: PSORIASIS
     Dosage: 1.1 ML, 1/WEEK, SUBCUTANEOUS
     Route: 058
     Dates: start: 20040604
  2. CELECOXIB (CELECOXIB) [Concomitant]
  3. NORVASC [Concomitant]
  4. AVALIDE [Concomitant]

REACTIONS (1)
  - PSORIASIS [None]
